FAERS Safety Report 8903548 (Version 1)
Quarter: 2012Q4

REPORT INFORMATION
  Report Type: 
  Country: GB (occurrence: GB)
  Receive Date: 20121113
  Receipt Date: 20121113
  Transmission Date: 20130627
  Serious: Yes (Other)
  Sender: FDA-Public Use
  Company Number: GB-WATSON-2012-18823

PATIENT
  Sex: Male

DRUGS (2)
  1. RISPERIDONE (UNKNOWN) [Suspect]
     Indication: PRODUCT USED FOR UNKNOWN INDICATION
     Dosage: 6mg,UNK
     Route: 048
     Dates: start: 201207, end: 20120829
  2. RISPERDAL CONSTA [Suspect]
     Indication: PRODUCT USED FOR UNKNOWN INDICATION
     Dosage: 25mg, UNK
     Route: 030
     Dates: start: 201207

REACTIONS (1)
  - Condition aggravated [Unknown]
